FAERS Safety Report 5672959-6 (Version None)
Quarter: 2008Q1

REPORT INFORMATION
  Report Type: 
  Country: None (occurrence: None)
  Receive Date: 20080319
  Receipt Date: 20071126
  Transmission Date: 20080703
  Serious: No
  Sender: FDA-Public Use
  Company Number: US-ASTRAZENECA-2007UW27075

PATIENT
  Age: 61 Year
  Sex: Male
  Weight: 90.7 kg

DRUGS (16)
  1. SYMBICORT [Suspect]
     Dosage: 160/4.5 MCG 2 INHALATIONS BID
     Route: 055
  2. NIFEDIPINE [Concomitant]
  3. XOPENEX [Concomitant]
  4. EXTENDRYL XR [Concomitant]
  5. AMBI 87/80 [Concomitant]
  6. PROAIR HFA [Concomitant]
  7. PROTONIX [Concomitant]
  8. METOPROLOL TARTRATE [Concomitant]
  9. AMITRIPTYLINE HCL [Concomitant]
  10. HYZAAR [Concomitant]
  11. NEXIUM [Concomitant]
  12. ULTRACET [Concomitant]
  13. FORADIL [Concomitant]
  14. GABAPENTIN [Concomitant]
  15. SPIRIVA [Concomitant]
  16. ALBUTEROL [Concomitant]

REACTIONS (1)
  - LOSS OF CONSCIOUSNESS [None]
